FAERS Safety Report 10396619 (Version 2)
Quarter: 2014Q3

REPORT INFORMATION
  Report Type: Spontaneous
  Country: BR (occurrence: BR)
  Receive Date: 20140820
  Receipt Date: 20140822
  Transmission Date: 20150326
  Serious: Yes (Hospitalization)
  Sender: FDA-Public Use
  Company Number: BR-PFIZER INC-2014229910

PATIENT
  Age: 64 Year
  Sex: Female
  Weight: 75 kg

DRUGS (5)
  1. ATENOLOL. [Suspect]
     Active Substance: ATENOLOL
     Indication: HYPERTENSION
     Dosage: 2 DF, 2X/DAY
     Route: 048
  2. CHLORTHALIDONE. [Suspect]
     Active Substance: CHLORTHALIDONE
     Dosage: UNK
     Route: 048
     Dates: start: 2012
  3. ROSUVASTATIN [Suspect]
     Active Substance: ROSUVASTATIN
     Indication: BLOOD CHOLESTEROL INCREASED
     Dosage: 10 MG, DAILY
     Route: 048
     Dates: start: 2012
  4. BRILINTA [Suspect]
     Active Substance: TICAGRELOR
     Indication: STENT PLACEMENT
     Dosage: 90 MG, 2X/DAY
     Route: 048
     Dates: start: 201302, end: 201306
  5. ASA [Suspect]
     Active Substance: ASPIRIN
     Indication: STENT PLACEMENT
     Dosage: UNK
     Route: 048
     Dates: start: 201302

REACTIONS (4)
  - Blood cholesterol increased [Recovering/Resolving]
  - Haematoma [Recovered/Resolved]
  - Off label use [Not Recovered/Not Resolved]
  - Coronary artery occlusion [Recovered/Resolved]

NARRATIVE: CASE EVENT DATE: 2012
